FAERS Safety Report 8831278 (Version 1)
Quarter: 2012Q4

REPORT INFORMATION
  Report Type: 
  Country: US (occurrence: US)
  Receive Date: 20121009
  Receipt Date: 20121009
  Transmission Date: 20130627
  Serious: Yes (Disabling)
  Sender: FDA-Public Use
  Company Number: US-MYLANLABS-2012S1020086

PATIENT
  Age: 59 Year
  Sex: Female

DRUGS (14)
  1. LORAZEPAM [Suspect]
     Indication: DEPRESSION
     Dosage: 1mg/day as needed, 2mg/day at bedtime; reported taking 4 tablets per day
     Route: 065
  2. LORAZEPAM [Suspect]
     Indication: ANXIETY
     Dosage: 1mg/day as needed, 2mg/day at bedtime; reported taking 4 tablets per day
     Route: 065
  3. CITALOPRAM [Concomitant]
     Indication: DEPRESSION
     Dosage: 40 mg/day
     Route: 065
  4. CITALOPRAM [Concomitant]
     Indication: ANXIETY
     Dosage: 40 mg/day
     Route: 065
  5. IMIPRAMINE [Concomitant]
     Indication: DEPRESSION
     Dosage: 150 mg/day at bedtime
     Route: 065
  6. IMIPRAMINE [Concomitant]
     Indication: ANXIETY
     Dosage: 150 mg/day at bedtime
     Route: 065
  7. TRIFLUOPERAZINE [Concomitant]
     Indication: DEPRESSION
     Dosage: 5 mg/day
     Route: 065
  8. TRIFLUOPERAZINE [Concomitant]
     Indication: ANXIETY
     Dosage: 5 mg/day
     Route: 065
  9. DIGOXIN [Concomitant]
     Dosage: 62.5 mcg/day
     Route: 065
  10. FUROSEMIDE [Concomitant]
     Dosage: 240 mg/day
     Route: 065
  11. METFORMIN [Concomitant]
     Dosage: 1000 mg/day
     Route: 065
  12. MULTIVITAMIN [Concomitant]
     Dosage: 1 tablet/day
     Route: 048
  13. NIACIN [Concomitant]
     Dosage: 100 mg/day
     Route: 065
  14. POTASSIUM CHLORIDE [Concomitant]
     Dosage: 80 mEq/day
     Route: 065

REACTIONS (2)
  - Withdrawal syndrome [Recovered/Resolved]
  - Catatonia [Recovered/Resolved]
